FAERS Safety Report 18689105 (Version 1)
Quarter: 2020Q4

REPORT INFORMATION
  Report Type: Spontaneous
  Country: RO (occurrence: RO)
  Receive Date: 20201231
  Receipt Date: 20201231
  Transmission Date: 20210114
  Serious: Yes (Other)
  Sender: FDA-Public Use
  Company Number: RO-GRANULES-RO-2020GRALIT00114

PATIENT
  Age: 35 Year
  Sex: Male

DRUGS (5)
  1. RANITIDINE. [Suspect]
     Active Substance: RANITIDINE
     Indication: ABDOMINAL PAIN UPPER
     Route: 065
  2. DESLORATADINE. [Interacting]
     Active Substance: DESLORATADINE
     Indication: RHINITIS ALLERGIC
     Route: 065
  3. FLUTICASONE FUROATE [Interacting]
     Active Substance: FLUTICASONE FUROATE
     Indication: RHINITIS ALLERGIC
     Route: 045
  4. LEVOCETIRIZINE [Interacting]
     Active Substance: LEVOCETIRIZINE
     Indication: RHINITIS ALLERGIC
     Route: 065
  5. OMEPRAZOLE ABBOTT [Interacting]
     Active Substance: OMEPRAZOLE
     Indication: ABDOMINAL PAIN UPPER
     Route: 065

REACTIONS (3)
  - Angioedema [Recovered/Resolved]
  - Urticaria [Recovered/Resolved]
  - Hypersensitivity [Recovered/Resolved]
